FAERS Safety Report 6384672-0 (Version None)
Quarter: 2009Q4

REPORT INFORMATION
  Report Type: 
  Country: None (occurrence: None)
  Receive Date: 20091001
  Receipt Date: 20090924
  Transmission Date: 20100525
  Serious: Yes (Other)
  Sender: FDA-Public Use
  Company Number: PHHY2009DE41732

PATIENT
  Age: 94 Year
  Sex: Female

DRUGS (1)
  1. VOLTAREN [Suspect]
     Dosage: 100 MG
     Route: 048
     Dates: start: 20090101

REACTIONS (2)
  - CYANOSIS [None]
  - HAEMORRHAGE [None]
